FAERS Safety Report 5067056-7 (Version None)
Quarter: 2006Q3

REPORT INFORMATION
  Report Type: 
  Country: None (occurrence: None)
  Receive Date: 20060801
  Receipt Date: 20060128
  Transmission Date: 20061208
  Serious: Yes (Other)
  Sender: FDA-Public Use
  Company Number: US-BAYER-200610571BWH

PATIENT
  Age: 57 Year
  Sex: Male

DRUGS (8)
  1. LEVITRA [Suspect]
     Indication: ERECTILE DYSFUNCTION
     Dosage: TOTAL DAILY DOSE: 20 MG  UNIT DOSE: 20 MG
     Route: 048
  2. LEVITRA [Suspect]
     Dosage: TOTAL DAILY DOSE: 20 MG  UNIT DOSE: 20 MG
     Route: 048
  3. LEVITRA [Suspect]
     Dosage: AS USED: 10 MG  UNIT DOSE: 10 MG
     Route: 048
  4. ADVAIR DISKUS 100/50 [Concomitant]
  5. ALBUTEROL SPIROS [Concomitant]
     Route: 055
  6. VITORIN [Concomitant]
  7. NAIASPAN [Concomitant]
  8. CENTRUM SILVER [Concomitant]

REACTIONS (11)
  - ABNORMAL BEHAVIOUR [None]
  - BLOOD PRESSURE INCREASED [None]
  - DRUG INEFFECTIVE [None]
  - FEELING ABNORMAL [None]
  - FEELING HOT [None]
  - HEART RATE INCREASED [None]
  - NOREPINEPHRINE INCREASED [None]
  - OVERDOSE [None]
  - PARAESTHESIA [None]
  - SWELLING [None]
  - UNEVALUABLE EVENT [None]
